FAERS Safety Report 14670837 (Version 3)
Quarter: 2019Q1

REPORT INFORMATION
  Report Type: Spontaneous
  Country: US (occurrence: US)
  Receive Date: 20180322
  Receipt Date: 20190219
  Transmission Date: 20190417
  Serious: Yes (Other)
  Sender: FDA-Public Use
  Company Number: US-PFIZER INC-2018119463

PATIENT
  Age: 57 Year
  Sex: Female
  Weight: 76.2 kg

DRUGS (3)
  1. GABAPENTIN. [Suspect]
     Active Substance: GABAPENTIN
     Dosage: 500 MG, DAILY (3 CAPSULES IN THE MORNING, 2 CAPSULES INTHE EVENING)
     Route: 048
  2. GABAPENTIN. [Suspect]
     Active Substance: GABAPENTIN
     Dosage: 300 MG, TWICE A DAY
     Route: 048
  3. GABAPENTIN. [Suspect]
     Active Substance: GABAPENTIN
     Indication: PAIN
     Dosage: 300 MG, THREE TIMES A DAY
     Route: 048
     Dates: start: 2016

REACTIONS (12)
  - Sinus disorder [Unknown]
  - Anxiety [Not Recovered/Not Resolved]
  - Product use in unapproved indication [Unknown]
  - Drug dependence [Unknown]
  - Emotional disorder [Unknown]
  - Night sweats [Unknown]
  - Panic attack [Not Recovered/Not Resolved]
  - Tremor [Unknown]
  - Dyspepsia [Unknown]
  - Headache [Unknown]
  - Palpitations [Not Recovered/Not Resolved]
  - Feeling abnormal [Unknown]

NARRATIVE: CASE EVENT DATE: 2016
